FAERS Safety Report 6584030-X (Version None)
Quarter: 2010Q1

REPORT INFORMATION
  Report Type: 
  Country: None (occurrence: None)
  Receive Date: 20100216
  Receipt Date: 20091204
  Transmission Date: 20100710
  Serious: No
  Sender: FDA-Public Use
  Company Number: US-ABBOTT-09P-163-0613195-00

PATIENT
  Age: 65 Year
  Sex: Female

DRUGS (2)
  1. SIMCOR [Suspect]
     Indication: DRUG USE FOR UNKNOWN INDICATION
  2. SIMCOR [Suspect]
     Dosage: UNKNOWN

REACTIONS (1)
  - MUSCLE SPASMS [None]
